FAERS Safety Report 17240747 (Version 1)
Quarter: 2020Q1

REPORT INFORMATION
  Report Type: Spontaneous
  Country: US (occurrence: US)
  Receive Date: 20200107
  Receipt Date: 20200107
  Transmission Date: 20200409
  Serious: No
  Sender: FDA-Public Use
  Company Number: US-TEVA-2019-US-1152974

PATIENT
  Age: 47 Year
  Sex: Female

DRUGS (15)
  1. PROAIR HFA [Concomitant]
     Active Substance: ALBUTEROL SULFATE
  2. KLONOPIN [Concomitant]
     Active Substance: CLONAZEPAM
  3. PROTONIX [Concomitant]
     Active Substance: PANTOPRAZOLE SODIUM
  4. NEURONTIN [Concomitant]
     Active Substance: GABAPENTIN
  5. COZAAR [Concomitant]
     Active Substance: LOSARTAN POTASSIUM
  6. NORVASC [Concomitant]
     Active Substance: AMLODIPINE BESYLATE
  7. COMBIGAN [Concomitant]
     Active Substance: BRIMONIDINE TARTRATE\TIMOLOL MALEATE
  8. LIDODERM [Concomitant]
     Active Substance: LIDOCAINE
  9. NAPROXEN. [Concomitant]
     Active Substance: NAPROXEN
  10. AUSTEDO [Suspect]
     Active Substance: DEUTETRABENAZINE
     Indication: DYSKINESIA
     Dosage: 48 MILLIGRAM DAILY;
     Route: 065
     Dates: start: 201801
  11. VITAMIN B12 [Concomitant]
     Active Substance: CYANOCOBALAMIN
  12. BOTOX [Concomitant]
     Active Substance: ONABOTULINUMTOXINA
  13. PROVENTIL HFA [Concomitant]
     Active Substance: ALBUTEROL SULFATE
  14. XALATAN [Concomitant]
     Active Substance: LATANOPROST
  15. AMBIEN [Concomitant]
     Active Substance: ZOLPIDEM TARTRATE

REACTIONS (2)
  - Chest discomfort [Unknown]
  - Product use in unapproved indication [Unknown]
